FAERS Safety Report 17075530 (Version 3)
Quarter: 2019Q4

REPORT INFORMATION
  Report Type: Spontaneous
  Country: US (occurrence: US)
  Receive Date: 20191126
  Receipt Date: 20191205
  Transmission Date: 20200122
  Serious: Yes (Other)
  Sender: FDA-Public Use
  Company Number: US-PFIZER INC-2019505150

PATIENT
  Sex: Male

DRUGS (1)
  1. TIKOSYN [Suspect]
     Active Substance: DOFETILIDE
     Dosage: 500 MG, 2X/DAY

REACTIONS (3)
  - Arrhythmia [Unknown]
  - Atrial flutter [Unknown]
  - Product prescribing error [Unknown]
